FAERS Safety Report 6417022-1 (Version None)
Quarter: 2009Q4

REPORT INFORMATION
  Report Type: 
  Country: None (occurrence: None)
  Receive Date: 20091027
  Receipt Date: 20091013
  Transmission Date: 20100525
  Serious: Yes (Other)
  Sender: FDA-Public Use
  Company Number: 2009-04223

PATIENT
  Age: 73 Year
  Sex: Female
  Weight: 70.5 kg

DRUGS (1)
  1. VELCADE [Suspect]
     Indication: MULTIPLE MYELOMA
     Dosage: 2.27 MG, INTRAVENOUS
     Route: 042
     Dates: start: 20090918, end: 20090928

REACTIONS (4)
  - HAEMOGLOBIN DECREASED [None]
  - NEUTROPENIA [None]
  - WHITE BLOOD CELL COUNT DECREASED [None]
  - WHITE BLOOD CELL COUNT INCREASED [None]
